FAERS Safety Report 8967052 (Version 2)
Quarter: 2013Q1

REPORT INFORMATION
  Report Type: Report from Study
  Country: SE (occurrence: SE)
  Receive Date: 20121214
  Receipt Date: 20130131
  Transmission Date: 20140127
  Serious: Yes (Hospitalization)
  Sender: FDA-Public Use
  Company Number: SE-PFIZER INC-2012288333

PATIENT
  Age: 50 Year
  Sex: Male
  Weight: 101 kg

DRUGS (7)
  1. GENOTROPIN [Suspect]
     Dosage: 0.8 MG, 1X/DAY, 7 INJECTIONS/WEEK
     Route: 058
     Dates: start: 20010219, end: 200709
  2. LEVOTHYROXINE [Concomitant]
     Indication: BLOOD THYROID STIMULATING HORMONE DECREASED
     Dosage: UNK
     Dates: start: 19700301
  3. LEVOTHYROXINE [Concomitant]
     Indication: PRIMARY HYPOTHYROIDISM
  4. CORTONE [Concomitant]
     Indication: BLOOD CORTICOTROPHIN DECREASED
     Dosage: UNK
     Dates: start: 19760401
  5. TESTOVIRON-DEPOT [Concomitant]
     Indication: LUTEINISING HORMONE DEFICIENCY
     Dosage: UNK
     Dates: start: 19760401
  6. TESTOVIRON-DEPOT [Concomitant]
     Indication: FOLLICLE-STIMULATING HORMONE DEFICIENCY
  7. TESTOVIRON-DEPOT [Concomitant]
     Indication: HYPOGONADISM MALE

REACTIONS (1)
  - Gallbladder disorder [Unknown]
